FAERS Safety Report 6474608-6 (Version None)
Quarter: 2009Q4

REPORT INFORMATION
  Report Type: 
  Country: None (occurrence: None)
  Receive Date: 20091204
  Receipt Date: 20090429
  Transmission Date: 20100525
  Serious: Yes (Life-Threatening, Hospitalization, Other)
  Sender: FDA-Public Use
  Company Number: GB-ELI_LILLY_AND_COMPANY-GB200902000058

PATIENT
  Sex: Female
  Weight: 112 kg

DRUGS (7)
  1. BYETTA [Suspect]
     Indication: DIABETES MELLITUS
     Dosage: 5 UG, 2/D
     Route: 058
     Dates: start: 20090126, end: 20090130
  2. INSULATARD [Concomitant]
     Dosage: 1 D/F, 2/D
     Route: 065
     Dates: start: 20060101, end: 20090101
  3. GLICLAZIDE [Concomitant]
     Dosage: 80 MG, 2/D
     Route: 065
     Dates: start: 20090121
  4. GLUCOPHAGE [Concomitant]
     Indication: TYPE 2 DIABETES MELLITUS
     Dosage: 2 G, DAILY (1/D)
     Route: 065
     Dates: start: 20050101
  5. ASPIRIN [Concomitant]
     Dosage: UNK, UNKNOWN
     Route: 065
  6. FLUOXETINE [Concomitant]
     Dosage: UNK, UNKNOWN
     Route: 065
  7. RAMIPRIL [Concomitant]
     Dosage: UNK, UNKNOWN
     Route: 065

REACTIONS (4)
  - ABDOMINAL PAIN [None]
  - METABOLIC ACIDOSIS [None]
  - NAUSEA [None]
  - VOMITING [None]
